FAERS Safety Report 5071231-5 (Version None)
Quarter: 2006Q3

REPORT INFORMATION
  Report Type: 
  Country: None (occurrence: None)
  Receive Date: 20060714
  Receipt Date: 20060425
  Transmission Date: 20061208
  Serious: No
  Sender: FDA-Public Use
  Company Number: 2006SP001844

PATIENT
  Age: 33 Year
  Sex: Female
  Weight: 49.8957 kg

DRUGS (8)
  1. LUNESTA [Suspect]
     Indication: INSOMNIA
     Dosage: 2 MG; ORAL
     Route: 048
     Dates: start: 20051115, end: 20051121
  2. AMBIEN [Concomitant]
  3. PANTOPRAZOLE SODIUM [Concomitant]
  4. LEVETIRACETAM [Concomitant]
  5. TRAZODONE HCL [Concomitant]
  6. REQUIP [Concomitant]
  7. ZONEGRAN [Concomitant]
  8. XANAX [Concomitant]

REACTIONS (2)
  - DRUG INEFFECTIVE [None]
  - INSOMNIA [None]
